FAERS Safety Report 4692556-9 (Version None)
Quarter: 2005Q2

REPORT INFORMATION
  Report Type: 
  Country: None (occurrence: None)
  Receive Date: 20050617
  Receipt Date: 20050606
  Transmission Date: 20051028
  Serious: Yes (Death, Other)
  Sender: FDA-Public Use
  Company Number: JP-ABBOTT-05P-087-0302360-00

PATIENT
  Age: 2 Day
  Sex: Female
  Weight: 1.9 kg

DRUGS (1)
  1. SEVOFLURANE [Suspect]
     Indication: DRUG EXPOSURE DURING PREGNANCY
     Route: 065

REACTIONS (12)
  - ACIDOSIS [None]
  - ANAEMIA [None]
  - APGAR SCORE LOW [None]
  - BRADYCARDIA FOETAL [None]
  - CAESAREAN SECTION [None]
  - CARDIOPULMONARY FAILURE [None]
  - DRUG EXPOSURE DURING PREGNANCY [None]
  - FOETAL ACIDOSIS [None]
  - FOETAL DISORDER [None]
  - NEONATAL ASPHYXIA [None]
  - NEONATAL DISORDER [None]
  - PREMATURE LABOUR [None]
